FAERS Safety Report 6521022-0 (Version None)
Quarter: 2009Q4

REPORT INFORMATION
  Report Type: 
  Country: None (occurrence: None)
  Receive Date: 20091229
  Receipt Date: 20091221
  Transmission Date: 20100525
  Serious: Yes (Hospitalization)
  Sender: FDA-Public Use
  Company Number: US-SANOFI-AVENTIS-200812875GDDC

PATIENT
  Age: 76 Year
  Sex: Male
  Weight: 73.5 kg

DRUGS (19)
  1. DOCETAXEL [Suspect]
     Dosage: DOSE AS USED: 710 MG AS CUMULATIVE DOSE MG
     Route: 042
     Dates: start: 20071213, end: 20080306
  2. MONOCLONAL ANTIBODIES [Suspect]
     Dosage: DOSE AS USED: 7320 MG AS CUMULATIVE DOSE MG
     Route: 042
     Dates: start: 20071213, end: 20080306
  3. PREDNISONE TAB [Suspect]
     Route: 048
     Dates: start: 20071213
  4. CELEBREX [Concomitant]
     Dosage: DOSE AS USED: UNK
     Route: 048
  5. PROCHLORPERAZINE [Concomitant]
     Dosage: DOSE AS USED: UNK
     Route: 048
     Dates: start: 20071206
  6. DECADRON /CAN/ [Concomitant]
     Dosage: DOSE AS USED: UNK
     Route: 048
     Dates: start: 20071206
  7. TOLTERODINE TARTRATE [Concomitant]
     Dosage: DOSE AS USED: UNK
     Route: 048
  8. VENLAFAXINE [Concomitant]
     Dosage: DOSE AS USED: UNK
     Route: 048
  9. SERTACONAZOLE NITRATE [Concomitant]
     Dosage: DOSE AS USED: UNK
  10. TAMSULOSIN HYDROCHLORIDE [Concomitant]
     Dosage: DOSE AS USED: UNK
     Route: 048
  11. FLONASE [Concomitant]
     Dosage: DOSE AS USED: UNK
  12. LISINOPRIL [Concomitant]
     Dosage: DOSE AS USED: UNK
     Route: 048
  13. LUPRON [Concomitant]
     Dosage: DOSE AS USED: UNK
     Route: 030
  14. PRILOSEC [Concomitant]
     Dosage: DOSE AS USED: UNK
     Route: 048
  15. PROSCAR [Concomitant]
     Dosage: DOSE AS USED: UNK
     Route: 048
  16. DESYREL [Concomitant]
     Dosage: DOSE AS USED: UNK
     Route: 048
  17. HYDROCODONE BITARTRATE + ACETAMINOPHEN [Concomitant]
     Dosage: DOSE AS USED: UNK
     Route: 048
  18. ZOFRAN [Concomitant]
     Dosage: DOSE AS USED: UNK
     Route: 048
  19. ZOMETA [Concomitant]
     Dosage: DOSE AS USED: UNK
     Route: 042
     Dates: start: 20071030

REACTIONS (8)
  - CEREBRAL ISCHAEMIA [None]
  - CHRONIC OBSTRUCTIVE PULMONARY DISEASE [None]
  - FATIGUE [None]
  - MEMORY IMPAIRMENT [None]
  - MENTAL STATUS CHANGES [None]
  - NEUTROPENIA [None]
  - SYNCOPE [None]
  - WHITE BLOOD CELL COUNT DECREASED [None]
